FAERS Safety Report 16684782 (Version 1)
Quarter: 2019Q3

REPORT INFORMATION
  Report Type: Spontaneous
  Country: US (occurrence: US)
  Receive Date: 20190808
  Receipt Date: 20190808
  Transmission Date: 20191004
  Serious: No
  Sender: FDA-Public Use
  Company Number: US-PFIZER INC-2019338933

PATIENT

DRUGS (6)
  1. NEOMYCIN SULFATE. [Suspect]
     Active Substance: NEOMYCIN SULFATE
     Dosage: UNK
  2. DIPHENHYDRAMINE HCL [Suspect]
     Active Substance: DIPHENHYDRAMINE HYDROCHLORIDE
     Dosage: UNK
  3. PRAMOXINE HCL [Suspect]
     Active Substance: PRAMOXINE HYDROCHLORIDE
     Dosage: UNK
  4. POLYMYXIN B SULFATE. [Suspect]
     Active Substance: POLYMYXIN B SULFATE
     Dosage: UNK
  5. BACITRACIN ZINC/HYDROCORTISONE/NEOMYCIN SULFATE/POLYMYXIN B SULFATE [Suspect]
     Active Substance: BACITRACIN ZINC\HYDROCORTISONE\NEOMYCIN SULFATE\POLYMYXIN B SULFATE
     Dosage: UNK
  6. MORPHINE SULFATE. [Suspect]
     Active Substance: MORPHINE SULFATE
     Dosage: UNK

REACTIONS (1)
  - Drug hypersensitivity [Unknown]
